FAERS Safety Report 22607555 (Version 1)
Quarter: 2023Q2

REPORT INFORMATION
  Report Type: Spontaneous
  Country: CN (occurrence: CN)
  Receive Date: 20230616
  Receipt Date: 20230616
  Transmission Date: 20230722
  Serious: Yes (Hospitalization, Other)
  Sender: FDA-Public Use
  Company Number: CN-BAYER-2023A082019

PATIENT
  Age: 64 Year
  Sex: Male
  Weight: 73 kg

DRUGS (1)
  1. XARELTO [Suspect]
     Active Substance: RIVAROXABAN
     Indication: Atrial fibrillation
     Dosage: 15 MG, QD
     Route: 048
     Dates: start: 20221221, end: 20230508

REACTIONS (8)
  - Haemorrhoidal haemorrhage [Recovered/Resolved]
  - Haematochezia [Recovered/Resolved]
  - Terminal ileitis [Unknown]
  - Blood loss anaemia [Unknown]
  - Diverticulum intestinal [Unknown]
  - Large intestine polyp [Unknown]
  - Prescribed underdose [Unknown]
  - Underdose [Unknown]

NARRATIVE: CASE EVENT DATE: 20221221
